FAERS Safety Report 8081452-5 (Version None)
Quarter: 2012Q1

REPORT INFORMATION
  Report Type: 
  Country: None (occurrence: None)
  Receive Date: 20120130
  Receipt Date: 20120125
  Transmission Date: 20120608
  Serious: Yes (Other)
  Sender: FDA-Public Use
  Company Number: US-PFIZER INC-2012020155

PATIENT
  Sex: Male
  Weight: 179.14 kg

DRUGS (2)
  1. ASPIRIN [Concomitant]
  2. VIAGRA [Suspect]
     Indication: ERECTILE DYSFUNCTION
     Dosage: 150 MG, AS NEEDED
     Route: 048
     Dates: start: 20110702

REACTIONS (2)
  - INCORRECT DOSE ADMINISTERED [None]
  - DYSURIA [None]
